FAERS Safety Report 15574331 (Version 1)
Quarter: 2018Q4

REPORT INFORMATION
  Report Type: Spontaneous
  Country: US (occurrence: US)
  Receive Date: 20181101
  Receipt Date: 20181101
  Transmission Date: 20190205
  Serious: Yes (Other)
  Sender: FDA-Public Use
  Company Number: US-CELGENEUS-USA-20181009676

PATIENT
  Sex: Male
  Weight: 67 kg

DRUGS (2)
  1. REVLIMID [Suspect]
     Active Substance: LENALIDOMIDE
     Indication: DIFFUSE LARGE B-CELL LYMPHOMA
     Dosage: 25 MILLIGRAM
     Route: 048
     Dates: start: 201712, end: 201803
  2. REVLIMID [Suspect]
     Active Substance: LENALIDOMIDE
     Indication: PROSTATE CANCER
     Dosage: 20 MILLIGRAM
     Route: 048
     Dates: start: 201803, end: 20181018

REACTIONS (3)
  - White blood cell count decreased [Not Recovered/Not Resolved]
  - Weight gain poor [Not Recovered/Not Resolved]
  - Pancreatitis [Not Recovered/Not Resolved]
